FAERS Safety Report 8188788-8 (Version None)
Quarter: 2012Q1

REPORT INFORMATION
  Report Type: 
  Country: None (occurrence: None)
  Receive Date: 20120306
  Receipt Date: 20120223
  Transmission Date: 20120608
  Serious: Yes (Other)
  Sender: FDA-Public Use
  Company Number: JP-PFIZER INC-2011227079

PATIENT
  Age: 58 Year
  Sex: Male
  Weight: 63.7 kg

DRUGS (6)
  1. AMLODIPINE [Concomitant]
     Indication: HYPERTENSION
     Dosage: UNK
     Route: 048
     Dates: start: 20100727
  2. HYDROCHLOROTHIAZIDE AND TELMISARTAN [Concomitant]
     Indication: HYPERTENSION
     Dosage: UNK
     Route: 048
     Dates: start: 20100928, end: 20110330
  3. HYDROCHLOROTHIAZIDE AND TELMISARTAN [Concomitant]
     Dosage: 160 MG, UNK
     Dates: start: 20110518
  4. LANTUS [Concomitant]
     Indication: DIABETES MELLITUS
     Dosage: UNK
     Dates: start: 20091016
  5. APIDRA [Concomitant]
     Indication: DIABETES MELLITUS
     Dosage: UNK
     Dates: start: 20091016
  6. ATORVASTATIN CALCIUM [Suspect]
     Indication: HYPERCHOLESTEROLAEMIA
     Dosage: 5 MG, UID/QD
     Route: 048
     Dates: start: 20101130, end: 20110330

REACTIONS (3)
  - DIABETIC NEPHROPATHY [None]
  - BLOOD CREATINE PHOSPHOKINASE INCREASED [None]
  - HYPERTENSION [None]
